FAERS Safety Report 18104473 (Version 4)
Quarter: 2020Q3

REPORT INFORMATION
  Report Type: Spontaneous
  Country: US (occurrence: US)
  Receive Date: 20200803
  Receipt Date: 20200818
  Transmission Date: 20201103
  Serious: Yes (Other)
  Sender: FDA-Public Use
  Company Number: US-ACTELION-A-US2020-207342

PATIENT
  Sex: Female
  Weight: 73.47 kg

DRUGS (3)
  1. GABAPENTIN. [Suspect]
     Active Substance: GABAPENTIN
     Indication: PRODUCT USED FOR UNKNOWN INDICATION
     Route: 065
  2. OPSUMIT [Suspect]
     Active Substance: MACITENTAN
     Indication: PULMONARY ARTERIAL HYPERTENSION
     Dosage: 10 MG, QD
     Route: 048
     Dates: start: 20200712
  3. VELETRI [Suspect]
     Active Substance: EPOPROSTENOL
     Indication: PULMONARY ARTERIAL HYPERTENSION
     Dosage: 13.75 NG/KG
     Route: 042

REACTIONS (24)
  - Formication [Unknown]
  - Chest discomfort [Unknown]
  - Panic reaction [Unknown]
  - Hypotension [Unknown]
  - Swelling [Unknown]
  - Pain in extremity [Unknown]
  - Headache [Unknown]
  - Hepatic cirrhosis [Unknown]
  - Arthralgia [Unknown]
  - Aphonia [Unknown]
  - Ventricular extrasystoles [Unknown]
  - Nervousness [Unknown]
  - Muscular weakness [Unknown]
  - Sleep disorder [Unknown]
  - Dizziness [Unknown]
  - Fluid retention [Unknown]
  - Feeling hot [Unknown]
  - Seasonal allergy [Unknown]
  - Malaise [Unknown]
  - Flushing [Unknown]
  - Erythema [Unknown]
  - Unevaluable event [Unknown]
  - Discharge [Unknown]
  - Urinary tract infection [Unknown]
